FAERS Safety Report 15004881 (Version 1)
Quarter: 2018Q2

REPORT INFORMATION
  Report Type: Spontaneous
  Country: US (occurrence: US)
  Receive Date: 20180521
  Receipt Date: 20180521
  Transmission Date: 20180711
  Serious: Yes (Hospitalization)
  Sender: FDA-Public Use
  Company Number: None

PATIENT
  Age: 87 Year
  Sex: Female
  Weight: 67.6 kg

DRUGS (8)
  1. CARDIZEM CD [Concomitant]
     Active Substance: DILTIAZEM HYDROCHLORIDE
  2. LIPITOR [Concomitant]
     Active Substance: ATORVASTATIN CALCIUM
  3. ECOTRIN [Suspect]
     Active Substance: ASPIRIN
     Indication: ATRIAL FIBRILLATION
     Dosage: 81 MG, PO, NIGHTLY
     Route: 048
  4. LANOXIN [Concomitant]
     Active Substance: DIGOXIN
  5. VITD3 [Concomitant]
  6. WARFARIN [Suspect]
     Active Substance: WARFARIN
     Indication: ATRIAL FIBRILLATION
     Dosage: 2.5 MG PO NIGHTLY
     Route: 048
  7. TAMBOCOR [Concomitant]
     Active Substance: FLECAINIDE ACETATE
  8. HCTZ [Concomitant]
     Active Substance: HYDROCHLOROTHIAZIDE

REACTIONS (2)
  - Lower gastrointestinal haemorrhage [None]
  - Diverticulum [None]

NARRATIVE: CASE EVENT DATE: 20180219
